FAERS Safety Report 7907355-1 (Version None)
Quarter: 2011Q4

REPORT INFORMATION
  Report Type: 
  Country: None (occurrence: None)
  Receive Date: 20111110
  Receipt Date: 20110929
  Transmission Date: 20120403
  Serious: Yes (Other)
  Sender: FDA-Public Use
  Company Number: DE-GLAXOSMITHKLINE-D0072897A

PATIENT
  Sex: Female

DRUGS (2)
  1. REQUIP [Suspect]
     Dosage: 8MG PER DAY
     Route: 048
  2. AZILECT [Concomitant]
     Dosage: 1MG PER DAY
     Route: 065

REACTIONS (7)
  - MEDICATION RESIDUE [None]
  - DRUG INEFFECTIVE [None]
  - WEIGHT INCREASED [None]
  - CONDITION AGGRAVATED [None]
  - PARKINSONISM [None]
  - GAIT DISTURBANCE [None]
  - MOTOR DYSFUNCTION [None]
